FAERS Safety Report 13495997 (Version 10)
Quarter: 2018Q2

REPORT INFORMATION
  Report Type: Spontaneous
  Country: JP (occurrence: JP)
  Receive Date: 20170428
  Receipt Date: 20180613
  Transmission Date: 20180711
  Serious: Yes (Hospitalization, Other)
  Sender: FDA-Public Use
  Company Number: JP-009507513-1704JPN002227J

PATIENT
  Age: 68 Year
  Sex: Female
  Weight: 32 kg

DRUGS (13)
  1. CODEINE PHOSPHATE HYDRATE [Concomitant]
     Active Substance: CODEINE PHOSPHATE
     Dosage: UNK
     Route: 048
  2. FLORID [Concomitant]
     Active Substance: MICONAZOLE
     Dosage: UNK
     Route: 048
  3. NERISONA [Concomitant]
     Active Substance: DIFLUCORTOLONE VALERATE
     Route: 061
  4. KEYTRUDA [Suspect]
     Active Substance: PEMBROLIZUMAB
     Indication: LUNG ADENOCARCINOMA STAGE IV
     Dosage: 200 MG, Q3W
     Route: 041
     Dates: start: 20170405
  5. MAGMITT [Concomitant]
     Active Substance: MAGNESIUM OXIDE
     Dosage: UNK
     Route: 048
  6. OLOPATADINE HYDROCHLORIDE OD [Concomitant]
     Dosage: UNK
     Route: 048
  7. EURAX H [Concomitant]
     Dosage: UNK
     Route: 061
  8. SOFTEAR [Concomitant]
     Active Substance: CYANOCOBALAMIN
     Route: 047
  9. SENNOSIDE [Concomitant]
     Active Substance: SENNOSIDES
     Dosage: UNK
     Route: 048
  10. NEXIUM [Concomitant]
     Active Substance: ESOMEPRAZOLE MAGNESIUM
     Dosage: UNK
     Route: 048
  11. PROPETO [Concomitant]
     Dosage: UNK
     Route: 061
  12. SPIRIVA [Concomitant]
     Active Substance: TIOTROPIUM BROMIDE MONOHYDRATE
     Dosage: UNK
     Route: 055
  13. TULOBUTEROL [Concomitant]
     Active Substance: TULOBUTEROL
     Dosage: UNK
     Route: 061

REACTIONS (5)
  - Pleural effusion [Recovering/Resolving]
  - Hypothyroidism [Recovering/Resolving]
  - Pericardial effusion [Recovering/Resolving]
  - Skin disorder [Recovered/Resolved]
  - Silent thyroiditis [Not Recovered/Not Resolved]

NARRATIVE: CASE EVENT DATE: 20170408
